FAERS Safety Report 4428084-5 (Version None)
Quarter: 2004Q3

REPORT INFORMATION
  Report Type: 
  Country: None (occurrence: None)
  Receive Date: 20040816
  Receipt Date: 20040802
  Transmission Date: 20050211
  Serious: Yes (Other)
  Sender: FDA-Public Use
  Company Number: US013488

PATIENT
  Age: 40 Year
  Sex: Male

DRUGS (2)
  1. ACTIQ [Suspect]
     Indication: PREMEDICATION
     Dosage: 800 UG ONCE BUCCAL
     Route: 002
  2. ACTIQ [Suspect]
     Indication: PREMEDICATION
     Dosage: 400 UG, BUCCAL
     Route: 002

REACTIONS (6)
  - DEHYDRATION [None]
  - MARKEDLY REDUCED DIETARY INTAKE [None]
  - OXYGEN SATURATION DECREASED [None]
  - RESPIRATORY DEPRESSION [None]
  - RESPIRATORY RATE DECREASED [None]
  - SEDATION [None]
